FAERS Safety Report 24671879 (Version 2)
Quarter: 2024Q4

REPORT INFORMATION
  Report Type: Spontaneous
  Country: US (occurrence: US)
  Receive Date: 20241127
  Receipt Date: 20241211
  Transmission Date: 20250115
  Serious: Yes (Other)
  Sender: EISAI
  Company Number: US-Eisai-EC-2024-179536

PATIENT
  Age: 51 Year
  Sex: Female
  Weight: 57 kg

DRUGS (2)
  1. LEQEMBI [Suspect]
     Active Substance: LECANEMAB-IRMB
     Indication: Dementia Alzheimer^s type
     Dosage: DOSE UNKNOWN
     Route: 042
  2. LEQEMBI [Suspect]
     Active Substance: LECANEMAB-IRMB
     Dosage: DOSE UNKNOWN (13TH INFUSION)
     Route: 042

REACTIONS (4)
  - Brain neoplasm [Unknown]
  - Central nervous system infection [Unknown]
  - Noninfective encephalitis [Unknown]
  - Confusional state [Recovered/Resolved]

NARRATIVE: CASE EVENT DATE: 20241101
